FAERS Safety Report 6132640-6 (Version None)
Quarter: 2009Q1

REPORT INFORMATION
  Report Type: 
  Country: None (occurrence: None)
  Receive Date: 20090324
  Receipt Date: 20090316
  Transmission Date: 20090719
  Serious: Yes (Death, Hospitalization)
  Sender: FDA-Public Use
  Company Number: 2009-193314-NL

PATIENT
  Age: 61 Year
  Sex: Female

DRUGS (15)
  1. DEXAMETHASONE TAB [Suspect]
     Indication: BRAIN OEDEMA
     Dosage: 4 MG QID, EVERY 6 HOURS
     Dates: start: 20081009
  2. DEXAMETHASONE TAB [Suspect]
     Indication: BRAIN OEDEMA
     Dosage: 14 MG DAILY
  3. DEXAMETHASONE TAB [Suspect]
     Indication: BRAIN OEDEMA
     Dosage: 12 MG DAILY
  4. STUDY DRUG CT-322 (BMS-844203) [Suspect]
     Indication: GLIOBLASTOMA MULTIFORME
     Dosage: SEE IMAGE
     Route: 042
     Dates: start: 20081106, end: 20081118
  5. TEMODAR [Suspect]
     Indication: GLIOBLASTOMA MULTIFORME
     Dosage: 125 MG DAILY ORAL
     Route: 048
     Dates: start: 20081106, end: 20081118
  6. RADIATION THERAPY [Suspect]
     Indication: GLIOBLASTOMA MULTIFORME
     Dosage: 2 DF DAILY, 2 GRAY FIVE TIMES A WEEK
     Dates: start: 20081106, end: 20081118
  7. KEPPRA [Concomitant]
  8. XANAX [Concomitant]
  9. TYLENOL [Concomitant]
  10. ZOFRAN [Concomitant]
  11. BACTRIM DS [Concomitant]
  12. TUMS [Concomitant]
  13. KYTRIL [Concomitant]
  14. TRANSDERMAL NICOTINE [Concomitant]
  15. VERAMYST [Concomitant]

REACTIONS (16)
  - BRONCHOPULMONARY ASPERGILLOSIS [None]
  - CARDIAC ARREST [None]
  - DEHYDRATION [None]
  - HYPOTENSION [None]
  - LETHARGY [None]
  - LYMPHOCYTE COUNT DECREASED [None]
  - METABOLIC ACIDOSIS [None]
  - NEUTROPHIL COUNT DECREASED [None]
  - NODAL RHYTHM [None]
  - PLATELET COUNT DECREASED [None]
  - PNEUMONIA [None]
  - PNEUMONIA BACTERIAL [None]
  - PULMONARY CAVITATION [None]
  - RESPIRATORY DISTRESS [None]
  - SINUS CONGESTION [None]
  - VENTRICULAR FIBRILLATION [None]
